FAERS Safety Report 8271796-6 (Version None)
Quarter: 2012Q1

REPORT INFORMATION
  Report Type: 
  Country: None (occurrence: None)
  Receive Date: 20120308
  Receipt Date: 20120124
  Transmission Date: 20120608
  Serious: No
  Sender: FDA-Public Use
  Company Number: PHEH2012US002464

PATIENT
  Age: 55 Year
  Sex: Male
  Weight: 106.1 kg

DRUGS (3)
  1. DIVALPROEX SODIUM [Concomitant]
  2. FANAPT [Suspect]
     Indication: PSYCHOTIC DISORDER
     Dosage: 6 MG, BID, ORAL
     Route: 048
     Dates: start: 20111005, end: 20111010
  3. FANAPT [Suspect]
     Indication: BIPOLAR DISORDER
     Dosage: 6 MG, BID, ORAL
     Route: 048
     Dates: start: 20111005, end: 20111010

REACTIONS (3)
  - MALAISE [None]
  - FATIGUE [None]
  - PALPITATIONS [None]
